FAERS Safety Report 9336698 (Version 1)
Quarter: 2013Q2

REPORT INFORMATION
  Report Type: Spontaneous
  Country: GB (occurrence: GB)
  Receive Date: 20130607
  Receipt Date: 20130607
  Transmission Date: 20140414
  Serious: Yes (Life-Threatening)
  Sender: FDA-Public Use
  Company Number: PHHY2013GB049060

PATIENT
  Sex: 0

DRUGS (4)
  1. METHOTREXATE [Suspect]
     Indication: OSTEOSARCOMA
     Dosage: 12 G/M^2
     Route: 042
     Dates: start: 20130418, end: 20130418
  2. LEVOMEPROMAZINE [Concomitant]
     Indication: OSTEOSARCOMA
     Dosage: 4.2 MG, BID
     Route: 042
     Dates: start: 20130418, end: 20130418
  3. CLARITHROMYCIN [Concomitant]
     Indication: LOWER RESPIRATORY TRACT INFECTION
     Route: 048
  4. CLARITHROMYCIN [Concomitant]
     Indication: LOWER RESPIRATORY TRACT INFECTION

REACTIONS (2)
  - General physical health deterioration [Not Recovered/Not Resolved]
  - Blood creatine increased [Not Recovered/Not Resolved]
